FAERS Safety Report 8276736-1 (Version None)
Quarter: 2012Q2

REPORT INFORMATION
  Report Type: 
  Country: None (occurrence: None)
  Receive Date: 20120412
  Receipt Date: 20120405
  Transmission Date: 20120825
  Serious: Yes (Other)
  Sender: FDA-Public Use
  Company Number: BR-PFIZER INC-2011081950

PATIENT
  Age: 67 Year
  Sex: Female
  Weight: 68.58 kg

DRUGS (3)
  1. LIPITOR [Suspect]
     Indication: TYPE IIA HYPERLIPIDAEMIA
     Dosage: UNK
     Route: 048
  2. OLMESARTAN MEDOXOMIL AND HYDROCHLOROTHIZIDE [Suspect]
     Indication: HYPERTENSION
     Dosage: [OLMESARTAN MEDOXOMIL 40MG / HYDROCHLOROTHIAZIDE 12.5MG], ONCE DAILY
     Route: 048
     Dates: start: 20090615
  3. CORDIL [Concomitant]
     Indication: CARDIAC DISORDER
     Dosage: UNK
     Dates: start: 20100101

REACTIONS (3)
  - CORONARY ARTERY DISEASE [None]
  - VASCULAR OPERATION [None]
  - BLOOD CHOLESTEROL INCREASED [None]
